FAERS Safety Report 6580092-4 (Version None)
Quarter: 2010Q1

REPORT INFORMATION
  Report Type: 
  Country: None (occurrence: None)
  Receive Date: 20100212
  Receipt Date: 20100202
  Transmission Date: 20100710
  Serious: Yes (Hospitalization)
  Sender: FDA-Public Use
  Company Number: US-MERCK-1002USA00473

PATIENT
  Age: 11 Year
  Sex: Male

DRUGS (5)
  1. SINGULAIR [Suspect]
     Indication: ASTHMA
     Route: 048
     Dates: end: 20070101
  2. ALBUTEROL [Concomitant]
     Route: 065
  3. PREDNISONE [Concomitant]
     Route: 065
  4. SYMBICORT [Concomitant]
     Route: 065
     Dates: start: 20070101
  5. SINGULAIR [Suspect]
     Route: 048
     Dates: start: 20070101

REACTIONS (5)
  - ASTHMA [None]
  - CRYING [None]
  - DEPRESSION [None]
  - MOOD SWINGS [None]
  - OVERDOSE [None]
